FAERS Safety Report 19674653 (Version 1)
Quarter: 2021Q3

REPORT INFORMATION
  Report Type: Spontaneous
  Country: PT (occurrence: PT)
  Receive Date: 20210809
  Receipt Date: 20210809
  Transmission Date: 20211014
  Serious: Yes (Life-Threatening, Hospitalization, Other)
  Sender: FDA-Public Use
  Company Number: PT-BAYER-2021-185553

PATIENT
  Age: 67 Year
  Sex: Female

DRUGS (9)
  1. GLICLAZIDE [Concomitant]
     Active Substance: GLICLAZIDE
     Indication: TYPE 2 DIABETES MELLITUS
  2. CIPROXINA 500 MG [Suspect]
     Active Substance: CIPROFLOXACIN
     Indication: MYCOBACTERIUM CHELONAE INFECTION
     Dosage: 500 MG, BID
     Route: 048
  3. CLARITHROMYCIN. [Interacting]
     Active Substance: CLARITHROMYCIN
     Indication: MYCOBACTERIUM CHELONAE INFECTION
  4. ENALAPRIL [Concomitant]
     Active Substance: ENALAPRIL
     Indication: HYPERTENSION
  5. SIMVASTATIN. [Interacting]
     Active Substance: SIMVASTATIN
     Indication: DYSLIPIDAEMIA
     Dosage: 40 MG, QD
  6. METFORMIN [Concomitant]
     Active Substance: METFORMIN HYDROCHLORIDE
     Indication: TYPE 2 DIABETES MELLITUS
  7. FUROSEMIDE. [Concomitant]
     Active Substance: FUROSEMIDE
     Indication: HYPERTENSION
  8. SIMVASTATIN. [Interacting]
     Active Substance: SIMVASTATIN
     Indication: ATRIAL FIBRILLATION
  9. WARFARIN [Concomitant]
     Active Substance: WARFARIN
     Indication: TYPE 2 DIABETES MELLITUS

REACTIONS (4)
  - Rhabdomyolysis [Recovered/Resolved]
  - Hyperkalaemia [Recovered/Resolved]
  - Metabolic acidosis [Recovered/Resolved]
  - Drug interaction [Recovered/Resolved]
